FAERS Safety Report 4333734-8 (Version None)
Quarter: 2004Q2

REPORT INFORMATION
  Report Type: 
  Country: None (occurrence: None)
  Receive Date: 20040406
  Receipt Date: 20040406
  Transmission Date: 20050107
  Serious: Yes (Other)
  Sender: FDA-Public Use
  Company Number: None

PATIENT
  Age: 48 Year
  Sex: Male

DRUGS (1)
  1. OMEPRAZOLE [Suspect]
     Indication: GASTRITIS
     Dosage: 40 MG BID ORAL
     Route: 048
     Dates: start: 20040305, end: 20040309

REACTIONS (5)
  - ABDOMINAL PAIN UPPER [None]
  - AGITATION [None]
  - FATIGUE [None]
  - INSOMNIA [None]
  - LETHARGY [None]
